FAERS Safety Report 4637039-7 (Version None)
Quarter: 2005Q2

REPORT INFORMATION
  Report Type: 
  Country: None (occurrence: None)
  Receive Date: 20050414
  Receipt Date: 20050403
  Transmission Date: 20051028
  Serious: Yes (Other)
  Sender: FDA-Public Use
  Company Number: 2005054277

PATIENT
  Sex: Female
  Weight: 77.1115 kg

DRUGS (2)
  1. NEURONTIN [Suspect]
     Indication: CONVULSION
     Dosage: 2400 MG (600 MG, 4 IN 1 D) ORAL
     Route: 048
  2. CLONAZEPAM [Concomitant]

REACTIONS (1)
  - CONVULSION [None]
